FAERS Safety Report 13870888 (Version 1)
Quarter: 2017Q3

REPORT INFORMATION
  Report Type: Spontaneous
  Country: NO (occurrence: NO)
  Receive Date: 20170816
  Receipt Date: 20170816
  Transmission Date: 20171127
  Serious: Yes (Other)
  Sender: FDA-Public Use
  Company Number: NO-GLAXOSMITHKLINE-NO2017126047

PATIENT
  Age: 4 Decade
  Sex: Female

DRUGS (6)
  1. NICORETTE [Suspect]
     Active Substance: NICOTINE
     Indication: TOBACCO USER
     Dosage: UNK
     Route: 065
     Dates: start: 201312
  2. NICORETTE FRESH MINT [Suspect]
     Active Substance: NICOTINE
     Dosage: UNK
     Route: 065
     Dates: start: 201312
  3. NICORETTE [Suspect]
     Active Substance: NICOTINE
     Dosage: UNK
     Route: 065
     Dates: start: 201312
  4. NICORETTE [Suspect]
     Active Substance: NICOTINE
     Dosage: UNK
     Route: 065
     Dates: start: 2012
  5. NICORETTE [Suspect]
     Active Substance: NICOTINE
     Indication: TOBACCO USER
     Dosage: UNK
     Route: 065
     Dates: start: 2012
  6. NICORETTE FRESH MINT [Suspect]
     Active Substance: NICOTINE
     Indication: TOBACCO USER
     Dosage: UNK
     Route: 065
     Dates: start: 2012

REACTIONS (3)
  - Product use in unapproved indication [Not Recovered/Not Resolved]
  - Nicotine dependence [Not Recovered/Not Resolved]
  - Intentional product use issue [Not Recovered/Not Resolved]

NARRATIVE: CASE EVENT DATE: 2012
